FAERS Safety Report 20659685 (Version 1)
Quarter: 2022Q1

REPORT INFORMATION
  Report Type: Spontaneous
  Country: CN (occurrence: CN)
  Receive Date: 20220331
  Receipt Date: 20220331
  Transmission Date: 20220423
  Serious: Yes (Other)
  Sender: FDA-Public Use
  Company Number: CN-ABBVIE-22K-035-4340001-00

PATIENT
  Sex: Male

DRUGS (1)
  1. VALPROATE SODIUM [Suspect]
     Active Substance: VALPROATE SODIUM
     Indication: Head discomfort
     Dosage: 333.3/145 MG
     Route: 065

REACTIONS (6)
  - Withdrawal syndrome [Unknown]
  - Head discomfort [Unknown]
  - Shock [Unknown]
  - Fall [Unknown]
  - Product use in unapproved indication [Unknown]
  - Tremor [Unknown]
